FAERS Safety Report 17066433 (Version 1)
Quarter: 2019Q4

REPORT INFORMATION
  Report Type: Spontaneous
  Country: US (occurrence: US)
  Receive Date: 20191122
  Receipt Date: 20191122
  Transmission Date: 20200122
  Serious: Yes (Other)
  Sender: FDA-Public Use
  Company Number: US-BIODELIVERY SCIENCES INTERNATIONAL-2019BDSI0223

PATIENT
  Sex: Male
  Weight: 106.69 kg

DRUGS (6)
  1. BUPRENORPHINE. [Suspect]
     Active Substance: BUPRENORPHINE
     Route: 002
     Dates: start: 2018, end: 2018
  2. BUPRENORPHINE. [Suspect]
     Active Substance: BUPRENORPHINE
     Indication: PAIN
     Route: 002
     Dates: start: 2018, end: 2018
  3. BUPRENORPHINE. [Suspect]
     Active Substance: BUPRENORPHINE
     Route: 002
     Dates: start: 2018
  4. BUPRENORPHINE. [Suspect]
     Active Substance: BUPRENORPHINE
     Route: 002
     Dates: start: 2018, end: 2018
  5. GABAPENTIN. [Concomitant]
     Active Substance: GABAPENTIN
     Indication: PAIN
  6. METFORMIN [Concomitant]
     Active Substance: METFORMIN HYDROCHLORIDE
     Indication: DIABETES MELLITUS

REACTIONS (20)
  - Blood glucose decreased [Unknown]
  - Abdominal discomfort [Recovering/Resolving]
  - Breath odour [Not Recovered/Not Resolved]
  - Product taste abnormal [Unknown]
  - Pain [Recovering/Resolving]
  - Hair disorder [Recovering/Resolving]
  - Product adhesion issue [Unknown]
  - Muscle fatigue [Recovering/Resolving]
  - Breakthrough pain [Recovering/Resolving]
  - Dental caries [Not Recovered/Not Resolved]
  - Product solubility abnormal [Unknown]
  - Bone pain [Recovering/Resolving]
  - Headache [Recovering/Resolving]
  - Drug withdrawal syndrome [Not Recovered/Not Resolved]
  - Drug ineffective [Recovering/Resolving]
  - Abdominal pain upper [Recovering/Resolving]
  - Spider vein [Recovering/Resolving]
  - Burning sensation [Recovering/Resolving]
  - Erythema [Recovering/Resolving]
  - Wrong technique in product usage process [Recovered/Resolved]

NARRATIVE: CASE EVENT DATE: 2018
